FAERS Safety Report 26116759 (Version 1)
Quarter: 2025Q4

REPORT INFORMATION
  Report Type: Report from Study
  Country: EU (occurrence: EU)
  Receive Date: 20251203
  Receipt Date: 20251203
  Transmission Date: 20260117
  Serious: Yes (Hospitalization, Other)
  Sender: CHEPLAPHARM
  Company Number: EU-CHEPLA-2025013648

PATIENT
  Age: 71 Year
  Sex: Male

DRUGS (15)
  1. CLONAZEPAM [Suspect]
     Active Substance: CLONAZEPAM
     Dosage: DAILY DOSE: 1 MILLIGRAM
  2. CLOZAPINE [Suspect]
     Active Substance: CLOZAPINE
     Dosage: TID?DAILY DOSE: 300 MILLIGRAM
     Dates: start: 20240101
  3. CLOZAPINE [Suspect]
     Active Substance: CLOZAPINE
     Dosage: TID?DAILY DOSE: 300 MILLIGRAM
     Dates: start: 20240120
  4. CLOZAPINE [Suspect]
     Active Substance: CLOZAPINE
     Dates: start: 20240121
  5. CLOZAPINE [Suspect]
     Active Substance: CLOZAPINE
     Dates: start: 20240122
  6. CLOZAPINE [Suspect]
     Active Substance: CLOZAPINE
     Dosage: 50 (8H)
     Route: 048
     Dates: start: 20240123
  7. CLOZAPINE [Suspect]
     Active Substance: CLOZAPINE
     Dosage: 8H
     Dates: start: 20240124
  8. CLOZAPINE [Suspect]
     Active Substance: CLOZAPINE
     Dosage: DAILY DOSE: 225 MILLIGRAM
     Route: 048
     Dates: start: 20250125
  9. CLOZAPINE [Suspect]
     Active Substance: CLOZAPINE
     Dosage: DAILY DOSE: 1000 MILLIGRAM
     Route: 048
  10. FLUPENTIXOL [Suspect]
     Active Substance: FLUPENTIXOL
  11. ATORVASTATIN [Suspect]
     Active Substance: ATORVASTATIN
     Dosage: DAILY DOSE: 10 MILLIGRAM
  12. AMLODIPINE [Suspect]
     Active Substance: AMLODIPINE BESYLATE
     Dosage: DAILY DOSE: 5 MILLIGRAM
  13. SPIRONOLACTONE [Suspect]
     Active Substance: SPIRONOLACTONE
     Dosage: DAILY DOSE: 25 MILLIGRAM
  14. AMITRIPTYLINE [Suspect]
     Active Substance: AMITRIPTYLINE
     Indication: Salivary hypersecretion
     Dosage: DAILY DOSE: 25 MILLIGRAM
  15. FLUPENTIXOL DECANOATE [Suspect]
     Active Substance: FLUPENTIXOL DECANOATE

REACTIONS (3)
  - Schizophrenia [Recovering/Resolving]
  - Upper respiratory tract infection [Unknown]
  - Sedation [Unknown]
